APPROVED DRUG PRODUCT: KETOROLAC TROMETHAMINE
Active Ingredient: KETOROLAC TROMETHAMINE
Strength: 30MG/ML
Dosage Form/Route: INJECTABLE;INJECTION
Application: A075631 | Product #001
Applicant: BAXTER HEALTHCARE CORP
Approved: Jun 29, 2001 | RLD: No | RS: No | Type: DISCN